FAERS Safety Report 4970235-8 (Version None)
Quarter: 2006Q2

REPORT INFORMATION
  Report Type: 
  Country: None (occurrence: None)
  Receive Date: 20060406
  Receipt Date: 20060324
  Transmission Date: 20061013
  Serious: Yes (Other)
  Sender: FDA-Public Use
  Company Number: 2006042670

PATIENT
  Sex: Female

DRUGS (2)
  1. CELEBREX [Suspect]
     Indication: ILL-DEFINED DISORDER
  2. PREVISCAN (FLUINDIONE) [Suspect]
     Indication: ILL-DEFINED DISORDER

REACTIONS (3)
  - GENERALISED OEDEMA [None]
  - HYPERNATRAEMIA [None]
  - WEIGHT INCREASED [None]
